FAERS Safety Report 19743860 (Version 3)
Quarter: 2021Q3

REPORT INFORMATION
  Report Type: Spontaneous
  Country: US (occurrence: US)
  Receive Date: 20210824
  Receipt Date: 20210927
  Transmission Date: 20211014
  Serious: No
  Sender: FDA-Public Use
  Company Number: US-JNJFOC-20210820788

PATIENT
  Age: 61 Year
  Sex: Male
  Weight: 81.72 kg

DRUGS (3)
  1. BENAZEPRIL [Concomitant]
     Active Substance: BENAZEPRIL HYDROCHLORIDE
     Indication: HYPERTENSION
  2. LEVOTHYROXINE. [Concomitant]
     Active Substance: LEVOTHYROXINE
     Indication: HYPERTENSION
  3. SIMPONI [Suspect]
     Active Substance: GOLIMUMAB
     Indication: RHEUMATOID ARTHRITIS
     Route: 058
     Dates: start: 20210710

REACTIONS (3)
  - Accidental exposure to product [Unknown]
  - Underdose [Unknown]
  - Needle issue [Unknown]

NARRATIVE: CASE EVENT DATE: 20210710
